FAERS Safety Report 9892281 (Version 1)
Quarter: 2014Q1

REPORT INFORMATION
  Report Type: Spontaneous
  Country: FR (occurrence: FR)
  Receive Date: 20140212
  Receipt Date: 20140212
  Transmission Date: 20141002
  Serious: Yes (Hospitalization, Other)
  Sender: FDA-Public Use
  Company Number: FR-PFIZER INC-2014035215

PATIENT
  Age: 91 Year
  Sex: Female

DRUGS (16)
  1. XANAX [Suspect]
     Dosage: 0.125 MG, 1X/DAY
     Route: 048
     Dates: end: 20131021
  2. XANAX [Suspect]
     Dosage: 0.25 MG, 1X/DAY
     Route: 048
     Dates: start: 20131022
  3. EFFEXOR LP [Suspect]
     Dosage: 75 MG, 1X/DAY
     Route: 048
     Dates: start: 20131121, end: 20131202
  4. EFFEXOR LP [Suspect]
     Dosage: 75MG ONCE A DAY AND 37.5MG ONCE A DAY
     Route: 048
     Dates: start: 20131203
  5. SERESTA [Suspect]
     Dosage: 20 MG, 1X/DAY
     Route: 048
     Dates: start: 20131203
  6. DIPIPERON [Suspect]
     Dosage: 15 GTT (40 MG/ML), UNK
     Route: 048
     Dates: start: 20131022, end: 20131022
  7. DEROXAT [Suspect]
     Dosage: 10 MG, 1X/DAY
     Route: 048
     Dates: start: 20131013, end: 20131021
  8. DEROXAT [Suspect]
     Dosage: 20 MG, 1X/DAY
     Route: 048
     Dates: start: 20131022, end: 20131121
  9. MICROPAKINE [Suspect]
     Dosage: 1000 MG, 1X/DAY
     Route: 048
     Dates: start: 20131203
  10. LASILIX [Concomitant]
     Dosage: 500 MG, DAILY
     Route: 048
  11. DEPAMIDE [Concomitant]
     Dosage: 300 MG, 1X/DAY
     Route: 048
     Dates: end: 20131203
  12. TEMERIT [Concomitant]
     Dosage: 2.5 MG, 1X/DAY
     Route: 048
  13. COUMADINE [Concomitant]
     Dosage: 2 MG, DAILY
     Route: 048
  14. INEXIUM [Concomitant]
     Dosage: 20 MG, 1X/DAY
     Route: 048
  15. CALCIDOSE VITAMINE D [Concomitant]
     Dosage: 1 DF, 1X/DAY
     Route: 048
  16. DOLIPRANE [Concomitant]
     Dosage: 500 MG, DAILY
     Route: 048

REACTIONS (7)
  - Fall [Recovered/Resolved]
  - Fracture [Recovering/Resolving]
  - Asthenia [Unknown]
  - Pyrexia [Unknown]
  - Respiratory distress [Unknown]
  - Wound [Unknown]
  - Mood altered [Unknown]
